FAERS Safety Report 6492050-9 (Version None)
Quarter: 2009Q4

REPORT INFORMATION
  Report Type: 
  Country: None (occurrence: None)
  Receive Date: 20091208
  Receipt Date: 20091125
  Transmission Date: 20100525
  Serious: Yes (Hospitalization)
  Sender: FDA-Public Use
  Company Number: A-CH2009-30915

PATIENT
  Age: 51 Year
  Sex: Male

DRUGS (1)
  1. TRACLEER [Suspect]
     Indication: PORTOPULMONARY HYPERTENSION
     Dosage: 62.5 MG, BID, ORAL, 125 MG, BID, ORAL, 62.5 MG, BID, UNK, 125 MG, BID, ORAL
     Route: 048

REACTIONS (14)
  - ANGIOTENSIN CONVERTING ENZYME INCREASED [None]
  - DYSPNOEA [None]
  - FATIGUE [None]
  - GRANULOMATOUS LIVER DISEASE [None]
  - HEPATIC CIRRHOSIS [None]
  - INTERNATIONAL NORMALISED RATIO INCREASED [None]
  - JUGULAR VEIN DISTENSION [None]
  - LEUKOPENIA [None]
  - OEDEMA PERIPHERAL [None]
  - PERICARDITIS [None]
  - SARCOIDOSIS [None]
  - SPLENOMEGALY [None]
  - THROMBOCYTOPENIA [None]
  - TUBERCULIN TEST POSITIVE [None]
